FAERS Safety Report 17186470 (Version 2)
Quarter: 2020Q1

REPORT INFORMATION
  Report Type: Spontaneous
  Country: IT (occurrence: IT)
  Receive Date: 20191220
  Receipt Date: 20200127
  Transmission Date: 20200409
  Serious: Yes (Other)
  Sender: FDA-Public Use
  Company Number: IT-FERRINGPH-2019FE08664

PATIENT
  Age: 77 Year
  Sex: Male

DRUGS (7)
  1. SELOKEN COMP [Concomitant]
  2. ZYPREXA [Concomitant]
     Active Substance: OLANZAPINE
  3. FIRMAGON [Suspect]
     Active Substance: DEGARELIX ACETATE
     Indication: PRODUCT USED FOR UNKNOWN INDICATION
     Route: 065
  4. NITROSORBIDE [Concomitant]
  5. CARDIOASPIRIN [Concomitant]
     Active Substance: ASPIRIN
  6. DEURSIL [Concomitant]
     Active Substance: URSODIOL
  7. GASTROLOC [OMEPRAZOLE MAGNESIUM] [Concomitant]

REACTIONS (3)
  - Injection site induration [Unknown]
  - Injection site bruising [Unknown]
  - Seizure [Recovered/Resolved]

NARRATIVE: CASE EVENT DATE: 20191209
